FAERS Safety Report 24232320 (Version 1)
Quarter: 2024Q3

REPORT INFORMATION
  Report Type: Spontaneous
  Country: CO (occurrence: CO)
  Receive Date: 20240821
  Receipt Date: 20240821
  Transmission Date: 20241017
  Serious: Yes (Hospitalization, Other)
  Sender: Vantive US Healthcare
  Company Number: CO-VANTIVE-2024VAN018622

PATIENT
  Age: 64 Year
  Sex: Male
  Weight: 64 kg

DRUGS (2)
  1. DIANEAL PD-2 WITH DEXTROSE [Suspect]
     Active Substance: CALCIUM CHLORIDE\DEXTROSE\MAGNESIUM CHLORIDE\SODIUM CHLORIDE\SODIUM LACTATE
     Indication: Peritoneal dialysis
     Dosage: 2L
     Route: 033
     Dates: start: 20220810
  2. DIANEAL LOW CALCIUM WITH DEXTROSE [Suspect]
     Active Substance: CALCIUM CHLORIDE\DEXTROSE\MAGNESIUM CHLORIDE\SODIUM CHLORIDE\SODIUM LACTATE
     Indication: Peritoneal dialysis
     Dosage: 6L
     Route: 033
     Dates: start: 20220810

REACTIONS (3)
  - Type 1 diabetes mellitus [Recovered/Resolved]
  - Diabetic complication [Recovered/Resolved]
  - Soft tissue disorder [Recovered/Resolved]

NARRATIVE: CASE EVENT DATE: 20240704
